FAERS Safety Report 9698946 (Version 1)
Quarter: 2013Q4

REPORT INFORMATION
  Report Type: Spontaneous
  Country: US (occurrence: None)
  Receive Date: 20131118
  Receipt Date: 20131118
  Transmission Date: 20140711
  Serious: Yes (Death)
  Sender: FDA-Public Use
  Company Number: US-DEXPHARM-20130930

PATIENT
  Age: 31 Year
  Sex: Male
  Weight: 68 kg

DRUGS (2)
  1. PRILOSEC [Suspect]
     Dosage: 20 MG 30 TIMES A DAY?
  2. COLCHICINE [Suspect]
     Dosage: 0.6 MG 160 TIMES A DAY

REACTIONS (5)
  - Nausea [None]
  - Vomiting [None]
  - Multi-organ failure [None]
  - Intentional overdose [None]
  - General physical health deterioration [None]
